FAERS Safety Report 22165270 (Version 2)
Quarter: 2023Q2

REPORT INFORMATION
  Report Type: Spontaneous
  Country: FR (occurrence: FR)
  Receive Date: 20230403
  Receipt Date: 20230413
  Transmission Date: 20230721
  Serious: Yes (Hospitalization, Other)
  Sender: FDA-Public Use
  Company Number: FR-MACLEODS PHARMA EU LTD-MAC2023040536

PATIENT

DRUGS (62)
  1. ARIPIPRAZOLE [Interacting]
     Active Substance: ARIPIPRAZOLE
     Indication: Major depression
     Dosage: UNK (IMMEDIATE RELEASE)
     Route: 065
  2. ARIPIPRAZOLE [Interacting]
     Active Substance: ARIPIPRAZOLE
     Dosage: 5 MILLIGRAM, QD
     Route: 065
     Dates: start: 20220610, end: 20220611
  3. ARIPIPRAZOLE [Interacting]
     Active Substance: ARIPIPRAZOLE
     Dosage: 10 MILLIGRAM, QD
     Route: 065
     Dates: start: 20220612, end: 20220612
  4. ARIPIPRAZOLE [Interacting]
     Active Substance: ARIPIPRAZOLE
     Dosage: 15 MILLIGRAM, QD
     Route: 065
     Dates: start: 20220613, end: 20220613
  5. ARIPIPRAZOLE [Interacting]
     Active Substance: ARIPIPRAZOLE
     Dosage: 30 MILLIGRAM, QD
     Route: 065
     Dates: start: 20220622, end: 20220623
  6. ARIPIPRAZOLE [Interacting]
     Active Substance: ARIPIPRAZOLE
     Dosage: 30 MILLIGRAM, QD
     Route: 065
     Dates: start: 20220624, end: 20220626
  7. ARIPIPRAZOLE [Interacting]
     Active Substance: ARIPIPRAZOLE
     Dosage: 30 MILLIGRAM, QD
     Route: 065
     Dates: start: 20220701, end: 20220701
  8. ARIPIPRAZOLE [Interacting]
     Active Substance: ARIPIPRAZOLE
     Dosage: 30 MILLIGRAM, QD
     Route: 065
     Dates: start: 20220705, end: 20220705
  9. OLANZAPINE [Suspect]
     Active Substance: OLANZAPINE
     Indication: Major depression
     Dosage: 10 MILLIGRAM, QD
     Route: 065
     Dates: start: 2021, end: 202203
  10. OLANZAPINE [Suspect]
     Active Substance: OLANZAPINE
     Dosage: 10 MILLIGRAM, QD
     Route: 065
     Dates: start: 20220706
  11. OLANZAPINE [Suspect]
     Active Substance: OLANZAPINE
     Dosage: 10 MILLIGRAM, QD
     Route: 065
     Dates: start: 20220727
  12. OLANZAPINE [Suspect]
     Active Substance: OLANZAPINE
     Dosage: 10 MILLIGRAM, QD
     Route: 065
     Dates: start: 20220826
  13. QUETIAPINE [Suspect]
     Active Substance: QUETIAPINE
     Indication: Major depression
     Dosage: 400 MILLIGRAM, QD
     Route: 065
     Dates: start: 202203
  14. QUETIAPINE [Suspect]
     Active Substance: QUETIAPINE
     Dosage: 400 MILLIGRAM, QD
     Route: 065
     Dates: start: 20220422, end: 20220423
  15. QUETIAPINE [Suspect]
     Active Substance: QUETIAPINE
     Dosage: 400 MILLIGRAM, QD
     Route: 065
     Dates: start: 20220426, end: 20220426
  16. QUETIAPINE [Suspect]
     Active Substance: QUETIAPINE
     Dosage: 300 MILLIGRAM, QD
     Route: 065
     Dates: start: 20220528, end: 20220528
  17. LAMOTRIGINE [Interacting]
     Active Substance: LAMOTRIGINE
     Indication: Major depression
     Dosage: UNK IMMEDIATE RELEASE
     Route: 065
  18. LAMOTRIGINE [Interacting]
     Active Substance: LAMOTRIGINE
     Dosage: 25 MILLIGRAM, QD
     Route: 065
     Dates: start: 20220608, end: 20220608
  19. LAMOTRIGINE [Interacting]
     Active Substance: LAMOTRIGINE
     Dosage: 25 MILLIGRAM, QD
     Route: 065
     Dates: start: 20220610, end: 20220613
  20. LAMOTRIGINE [Interacting]
     Active Substance: LAMOTRIGINE
     Dosage: 25 MILLIGRAM, QD
     Route: 065
     Dates: start: 20220622, end: 20220622
  21. LAMOTRIGINE [Interacting]
     Active Substance: LAMOTRIGINE
     Dosage: 50 MILLIGRAM, QD
     Route: 065
     Dates: start: 20220623, end: 20220626
  22. LAMOTRIGINE [Interacting]
     Active Substance: LAMOTRIGINE
     Dosage: 75 MILLIGRAM, QD
     Route: 065
     Dates: start: 20220701, end: 20220701
  23. LAMOTRIGINE [Interacting]
     Active Substance: LAMOTRIGINE
     Dosage: 75 MILLIGRAM, QD
     Route: 065
     Dates: start: 20220705, end: 20220705
  24. DIAZEPAM [Interacting]
     Active Substance: DIAZEPAM
     Indication: Major depression
     Dosage: 30 MILLIGRAM, QD
     Route: 065
     Dates: start: 20220422, end: 20220423
  25. DIAZEPAM [Interacting]
     Active Substance: DIAZEPAM
     Dosage: 30 MILLIGRAM, QD
     Route: 065
     Dates: start: 20220426, end: 20220426
  26. DIAZEPAM [Interacting]
     Active Substance: DIAZEPAM
     Dosage: 30 MILLIGRAM, QD
     Route: 065
     Dates: start: 20220528, end: 20220528
  27. DIAZEPAM [Interacting]
     Active Substance: DIAZEPAM
     Dosage: 30 MILLIGRAM, QD
     Route: 065
     Dates: start: 20220605, end: 20220605
  28. DIAZEPAM [Interacting]
     Active Substance: DIAZEPAM
     Dosage: 30 MILLIGRAM, QD
     Route: 065
     Dates: start: 20220608, end: 20220608
  29. DIAZEPAM [Interacting]
     Active Substance: DIAZEPAM
     Dosage: 30 MILLIGRAM, QD
     Route: 065
     Dates: start: 20220610, end: 20220613
  30. DIAZEPAM [Interacting]
     Active Substance: DIAZEPAM
     Dosage: 30 MILLIGRAM, QD
     Route: 065
     Dates: start: 20220705, end: 20220706
  31. DIAZEPAM [Interacting]
     Active Substance: DIAZEPAM
     Dosage: 30 MILLIGRAM, QD
     Route: 065
     Dates: start: 20220622, end: 20220626
  32. DIAZEPAM [Interacting]
     Active Substance: DIAZEPAM
     Dosage: 30 MILLIGRAM, QD
     Route: 065
     Dates: start: 20220701, end: 20220701
  33. DIAZEPAM [Interacting]
     Active Substance: DIAZEPAM
     Dosage: 30 MILLIGRAM, QD
     Route: 065
     Dates: start: 20220727, end: 20220727
  34. ZOPICLONE [Interacting]
     Active Substance: ZOPICLONE
     Indication: Major depression
     Dosage: 7.5 MILLIGRAM, QD
     Route: 065
     Dates: start: 20220422, end: 20220423
  35. ZOPICLONE [Interacting]
     Active Substance: ZOPICLONE
     Dosage: 7.5 MILLIGRAM, QD
     Route: 065
     Dates: start: 20220426, end: 20220426
  36. ZOPICLONE [Interacting]
     Active Substance: ZOPICLONE
     Dosage: 7.5 MILLIGRAM, QD
     Route: 065
     Dates: start: 20220528, end: 20220528
  37. ZOPICLONE [Interacting]
     Active Substance: ZOPICLONE
     Dosage: 7.5 MILLIGRAM, QD
     Route: 065
     Dates: start: 20220605, end: 20220605
  38. ZOPICLONE [Interacting]
     Active Substance: ZOPICLONE
     Dosage: 7.5 MILLIGRAM, QD
     Route: 065
     Dates: start: 20220608, end: 20220608
  39. ZOPICLONE [Interacting]
     Active Substance: ZOPICLONE
     Dosage: 7.5 MILLIGRAM, QD
     Route: 065
     Dates: start: 20220610, end: 20220613
  40. ZOPICLONE [Interacting]
     Active Substance: ZOPICLONE
     Dosage: 7.5 MILLIGRAM, QD
     Route: 065
     Dates: start: 20220622, end: 20220626
  41. ZOPICLONE [Interacting]
     Active Substance: ZOPICLONE
     Dosage: 7.5 MILLIGRAM, QD
     Route: 065
     Dates: start: 20220701, end: 20220701
  42. ZOPICLONE [Interacting]
     Active Substance: ZOPICLONE
     Dosage: 7.5 MILLIGRAM, QD
     Route: 065
     Dates: start: 20220705, end: 20220706
  43. ZOPICLONE [Interacting]
     Active Substance: ZOPICLONE
     Dosage: 7.5 MILLIGRAM, QD
     Route: 065
     Dates: start: 20220727, end: 20220727
  44. MIRTAZAPINE [Interacting]
     Active Substance: MIRTAZAPINE
     Indication: Major depression
     Dosage: UNK
     Route: 065
     Dates: start: 2021
  45. MIRTAZAPINE [Interacting]
     Active Substance: MIRTAZAPINE
     Dosage: 7.5 MILLIGRAM, QD
     Route: 065
     Dates: start: 20220610, end: 20220611
  46. MIRTAZAPINE [Interacting]
     Active Substance: MIRTAZAPINE
     Dosage: 15 MILLIGRAM, QD
     Route: 065
     Dates: start: 20220612, end: 20220613
  47. MIRTAZAPINE [Interacting]
     Active Substance: MIRTAZAPINE
     Dosage: 15 MILLIGRAM, QD
     Route: 065
     Dates: start: 20220622, end: 20220622
  48. MIRTAZAPINE [Interacting]
     Active Substance: MIRTAZAPINE
     Dosage: 30 MILLIGRAM, QD
     Route: 065
     Dates: start: 20220623, end: 20220624
  49. PAROXETINE [Concomitant]
     Active Substance: PAROXETINE
     Indication: Major depression
     Dosage: 20 MILLIGRAM, QD
     Route: 065
     Dates: start: 20220423, end: 20220423
  50. PAROXETINE [Concomitant]
     Active Substance: PAROXETINE
     Dosage: 40 MILLIGRAM, QD
     Route: 065
     Dates: start: 20220426, end: 20220426
  51. PAROXETINE [Concomitant]
     Active Substance: PAROXETINE
     Dosage: 40 MILLIGRAM, QD
     Route: 065
     Dates: start: 20220528, end: 20220528
  52. PAROXETINE [Concomitant]
     Active Substance: PAROXETINE
     Dosage: 40 MILLIGRAM, QD
     Route: 065
     Dates: start: 20220605, end: 20220605
  53. PAROXETINE [Concomitant]
     Active Substance: PAROXETINE
     Dosage: 40 MILLIGRAM, QD
     Route: 065
     Dates: start: 20220608, end: 20220608
  54. PAROXETINE [Concomitant]
     Active Substance: PAROXETINE
     Dosage: 40 MILLIGRAM, QD
     Route: 065
     Dates: start: 20220610, end: 20220610
  55. PAROXETINE [Concomitant]
     Active Substance: PAROXETINE
     Dosage: 20 MILLIGRAM, QD
     Route: 065
     Dates: start: 20220611
  56. CYAMEMAZINE [Concomitant]
     Active Substance: CYAMEMAZINE
     Indication: Major depression
     Dosage: 150 MILLIGRAM, QD
     Route: 065
     Dates: start: 20220422, end: 20220423
  57. CYAMEMAZINE [Concomitant]
     Active Substance: CYAMEMAZINE
     Dosage: 150 MILLIGRAM, QD
     Route: 065
     Dates: start: 20220426, end: 20220426
  58. CYAMEMAZINE [Concomitant]
     Active Substance: CYAMEMAZINE
     Dosage: 150 MILLIGRAM, QD
     Route: 065
     Dates: start: 20220528, end: 20220528
  59. CYAMEMAZINE [Concomitant]
     Active Substance: CYAMEMAZINE
     Dosage: 150 MILLIGRAM, QD
     Route: 065
     Dates: start: 20220605, end: 20220605
  60. CYAMEMAZINE [Concomitant]
     Active Substance: CYAMEMAZINE
     Dosage: 150 MILLIGRAM, QD
     Route: 065
     Dates: start: 20220608, end: 20220608
  61. CYAMEMAZINE [Concomitant]
     Active Substance: CYAMEMAZINE
     Dosage: 150 MILLIGRAM, QD
     Route: 065
     Dates: start: 20220610
  62. ETONOGESTREL [Concomitant]
     Active Substance: ETONOGESTREL
     Indication: Contraceptive implant
     Dosage: UNK
     Route: 065
     Dates: start: 2021

REACTIONS (10)
  - Hallucination, visual [Recovered/Resolved]
  - Condition aggravated [Recovered/Resolved]
  - Confusional state [Recovered/Resolved]
  - Delusion [Recovered/Resolved]
  - Agitation [Recovered/Resolved]
  - Delirium [Recovered/Resolved]
  - Drug interaction [Recovered/Resolved]
  - Drug-genetic interaction [Recovered/Resolved]
  - Weight increased [Unknown]
  - Torticollis [Unknown]

NARRATIVE: CASE EVENT DATE: 20220528
